FAERS Safety Report 20957045 (Version 1)
Quarter: 2022Q2

REPORT INFORMATION
  Report Type: Spontaneous
  Country: US (occurrence: US)
  Receive Date: 20220614
  Receipt Date: 20220614
  Transmission Date: 20220720
  Serious: Yes (Hospitalization)
  Sender: FDA-Public Use
  Company Number: US-SLATE RUN PHARMACEUTICALS-22US001142

PATIENT

DRUGS (7)
  1. BUPROPION HYDROCHLORIDE [Interacting]
     Active Substance: BUPROPION HYDROCHLORIDE
     Indication: Product used for unknown indication
     Dosage: 150 MILLIGRAM, QD
  2. DESVENLAFAXINE SUCCINATE [Interacting]
     Active Substance: DESVENLAFAXINE SUCCINATE
     Indication: Product used for unknown indication
     Dosage: 200 MILLIGRAM, QD
  3. TRAZODONE [Interacting]
     Active Substance: TRAZODONE HYDROCHLORIDE
     Indication: Product used for unknown indication
     Dosage: 100 MILLIGRAM, BEDTIME
  4. UNSPECIFIED INGREDIENT [Interacting]
     Active Substance: UNSPECIFIED INGREDIENT
     Indication: Sexual dysfunction
     Route: 048
  5. CLONIDINE [Concomitant]
     Active Substance: CLONIDINE
     Indication: Anxiety
     Dosage: 0.1 MILLIGRAM, BID PRN
     Route: 048
  6. LISDEXAMFETAMINE DIMESYLATE [Concomitant]
     Active Substance: LISDEXAMFETAMINE DIMESYLATE
     Indication: Attention deficit hyperactivity disorder
     Dosage: 100 MILLIGRAM, QD
  7. BUPRENORPHINE [Concomitant]
     Active Substance: BUPRENORPHINE
     Indication: Product used for unknown indication
     Dosage: 8 MILLIGRAM, QD

REACTIONS (14)
  - Hypertensive urgency [Recovered/Resolved]
  - Facial paralysis [Recovering/Resolving]
  - Hemiparesis [Recovering/Resolving]
  - Basal ganglia haemorrhage [Recovering/Resolving]
  - Haemorrhagic stroke [Recovering/Resolving]
  - Facial paresis [Recovering/Resolving]
  - Drug interaction [Recovered/Resolved]
  - Aphasia [Recovered/Resolved]
  - Coma scale abnormal [Recovered/Resolved]
  - Motor dysfunction [Recovering/Resolving]
  - Cognitive disorder [Recovering/Resolving]
  - Treatment failure [Unknown]
  - Sexual dysfunction [Unknown]
  - Rash [Unknown]
